FAERS Safety Report 6020270-6 (Version None)
Quarter: 2008Q4

REPORT INFORMATION
  Report Type: 
  Country: None (occurrence: None)
  Receive Date: 20081226
  Receipt Date: 20081218
  Transmission Date: 20090506
  Serious: Yes (Other)
  Sender: FDA-Public Use
  Company Number: PHEH2008US11239

PATIENT
  Sex: Male

DRUGS (2)
  1. EXELON [Suspect]
     Dosage: UNK
     Route: 048
     Dates: start: 19990101, end: 20081101
  2. EXELON [Suspect]
     Dosage: UNK
     Route: 062
     Dates: start: 20081101

REACTIONS (1)
  - RECTAL HAEMORRHAGE [None]
